FAERS Safety Report 6181502-7 (Version None)
Quarter: 2009Q2

REPORT INFORMATION
  Report Type: 
  Country: None (occurrence: None)
  Receive Date: 20090506
  Receipt Date: 20090427
  Transmission Date: 20091009
  Serious: Yes (Other)
  Sender: FDA-Public Use
  Company Number: AT-ABBOTT-09P-009-0571022-00

PATIENT
  Age: 52 Year
  Sex: Male

DRUGS (6)
  1. NORVIR [Suspect]
     Indication: HIV INFECTION
     Dates: start: 20030101
  2. ATAZANAVIR SULFATE [Suspect]
     Indication: HIV INFECTION
     Dates: start: 20030101
  3. TENOFOVIR DISOPROXIL FUMARATE + LAMIVUDINE [Suspect]
     Indication: HIV INFECTION
  4. ABACAVIR [Concomitant]
     Indication: HIV INFECTION
  5. DIDANOSIN [Concomitant]
     Indication: HIV INFECTION
  6. LOPINAVIR [Concomitant]
     Indication: HIV INFECTION

REACTIONS (2)
  - BLOOD CREATININE INCREASED [None]
  - NEPHROLITHIASIS [None]
